FAERS Safety Report 5615307-X (Version None)
Quarter: 2008Q1

REPORT INFORMATION
  Report Type: 
  Country: None (occurrence: None)
  Receive Date: 20080204
  Receipt Date: 20080204
  Transmission Date: 20080703
  Serious: Yes (Hospitalization)
  Sender: FDA-Public Use
  Company Number: None

PATIENT
  Age: 85 Year
  Sex: Male

DRUGS (2)
  1. METOPROLOL TARTRATE [Suspect]
     Indication: CARDIAC FAILURE CONGESTIVE
     Dosage: 25MG BID PO
     Route: 048
     Dates: start: 20070423, end: 20071126
  2. PROMETHAZINE [Suspect]
     Indication: NAUSEA
     Dosage: 25MG PRN PO
     Route: 048
     Dates: start: 20071123, end: 20071126

REACTIONS (9)
  - ATRIOVENTRICULAR BLOCK FIRST DEGREE [None]
  - BACK PAIN [None]
  - BRADYARRHYTHMIA [None]
  - COAGULOPATHY [None]
  - DRUG INTERACTION [None]
  - HEPATITIS ACUTE [None]
  - LOCALISED INFECTION [None]
  - NAUSEA [None]
  - NODAL ARRHYTHMIA [None]
